FAERS Safety Report 17062214 (Version 1)
Quarter: 2019Q4

REPORT INFORMATION
  Report Type: Spontaneous
  Country: JP (occurrence: JP)
  Receive Date: 20191122
  Receipt Date: 20191122
  Transmission Date: 20200122
  Serious: Yes (Other)
  Sender: FDA-Public Use
  Company Number: JP-TERSERA THERAPEUTICS LLC-2019TRS002652

PATIENT

DRUGS (2)
  1. NOLVADEX [Suspect]
     Active Substance: TAMOXIFEN CITRATE
     Indication: BREAST CANCER FEMALE
     Dosage: NON-ASTRAZENECA GENERIC
     Route: 048
     Dates: start: 201902, end: 201910
  2. ZOLADEX [Suspect]
     Active Substance: GOSERELIN ACETATE
     Indication: BREAST CANCER FEMALE
     Dosage: 20 MILLIGRAM, QD
     Route: 058
     Dates: start: 201902, end: 201910

REACTIONS (2)
  - Visual field defect [Recovering/Resolving]
  - Optic atrophy [Unknown]

NARRATIVE: CASE EVENT DATE: 20191001
